FAERS Safety Report 7995546-3 (Version None)
Quarter: 2011Q4

REPORT INFORMATION
  Report Type: 
  Country: None (occurrence: None)
  Receive Date: 20111220
  Receipt Date: 20111215
  Transmission Date: 20120403
  Serious: Yes (Other)
  Sender: FDA-Public Use
  Company Number: US-PFIZER INC-2011306178

PATIENT

DRUGS (2)
  1. TIKOSYN [Suspect]
     Indication: PROPHYLAXIS
     Dosage: UNK
  2. TIKOSYN [Suspect]
     Dosage: 125 UG, 1X/DAY

REACTIONS (1)
  - ELECTROCARDIOGRAM QT PROLONGED [None]
